FAERS Safety Report 8917010 (Version 1)
Quarter: 2012Q4

REPORT INFORMATION
  Report Type: 
  Country: US (occurrence: US)
  Receive Date: 20121120
  Receipt Date: 20121120
  Transmission Date: 20130627
  Serious: Yes (Hospitalization)
  Sender: FDA-Public Use
  Company Number: US-BAYER-2012-119911

PATIENT
  Age: 42 Year
  Sex: Female

DRUGS (12)
  1. YAZ [Suspect]
  2. GIANVI [Suspect]
     Dosage: UNK
     Dates: start: 20101209, end: 20110326
  3. BUPROPION HYDROCHLORIDE [Concomitant]
     Dosage: 300 mg, 1 tablet every day
     Route: 048
  4. Z-PAK [Concomitant]
  5. ALBUTEROL INHALER [Concomitant]
  6. IMITREX [Concomitant]
     Dosage: 5 mg, UNK
  7. WELLBUTRIN [Concomitant]
  8. PERCOCET [Concomitant]
  9. MULTIVITAMIN [Concomitant]
  10. FLONASE [Concomitant]
  11. VENTOLIN [Concomitant]
  12. PROVENTIL HFA [Concomitant]

REACTIONS (3)
  - Pulmonary embolism [None]
  - Pulmonary hypertension [None]
  - Pulmonary infarction [None]
